FAERS Safety Report 8620027-3 (Version None)
Quarter: 2012Q3

REPORT INFORMATION
  Report Type: 
  Country: None (occurrence: None)
  Receive Date: 20120824
  Receipt Date: 20120821
  Transmission Date: 20120928
  Serious: Yes (Other)
  Sender: FDA-Public Use
  Company Number: PHHY2012FR072940

PATIENT
  Sex: Female

DRUGS (3)
  1. PROGRAF [Concomitant]
     Dosage: UNK UKN, UNK
  2. CERTICAN [Suspect]
     Indication: PANCREAS ISLET CELL TRANSPLANT
     Dosage: 10 MG, BID, DAILY
  3. MYCOPHENOLATE MOFETIL (CELLCEPT) [Concomitant]
     Dosage: UNK UKN, UNK

REACTIONS (2)
  - DIARRHOEA [None]
  - MALABSORPTION [None]
